FAERS Safety Report 4309009-X (Version None)
Quarter: 2004Q1

REPORT INFORMATION
  Report Type: 
  Country: None (occurrence: None)
  Receive Date: 20040301
  Receipt Date: 20040216
  Transmission Date: 20041129
  Serious: Yes (Death)
  Sender: FDA-Public Use
  Company Number: 2004-06683

PATIENT
  Sex: Male
  Weight: 74.5 kg

DRUGS (6)
  1. ADEFOVIR DIPIVOXIL KIT [Suspect]
     Indication: HEPATITIS B
     Dosage: 10 MG QD PO
     Route: 048
     Dates: start: 20020522
  2. LAMIVUDINE [Concomitant]
  3. LASIX [Concomitant]
  4. ALDACTONE [Concomitant]
  5. LOSEC [Concomitant]
  6. LACTULOSE [Concomitant]

REACTIONS (5)
  - CYST [None]
  - HEPATIC CIRRHOSIS [None]
  - HEPATIC ENCEPHALOPATHY [None]
  - HEPATITIS GRANULOMATOUS [None]
  - NEURODEGENERATIVE DISORDER [None]
